FAERS Safety Report 11987898 (Version 1)
Quarter: 2016Q1

REPORT INFORMATION
  Report Type: Spontaneous
  Country: US (occurrence: None)
  Receive Date: 20160201
  Receipt Date: 20160201
  Transmission Date: 20160526
  Serious: Yes (Life-Threatening)
  Sender: FDA-Public Use
  Company Number: None

PATIENT
  Age: 56 Year
  Sex: Female
  Weight: 63.5 kg

DRUGS (6)
  1. BACTRIM [Suspect]
     Active Substance: SULFAMETHOXAZOLE\TRIMETHOPRIM
     Indication: STAPHYLOCOCCAL SKIN INFECTION
  2. VITAMIN E [Concomitant]
     Active Substance: .ALPHA.-TOCOPHEROL
  3. XYLIMELTS [Concomitant]
  4. THYROID MEDICATION [Concomitant]
     Active Substance: UNSPECIFIED INGREDIENT
  5. RESTASIS [Concomitant]
     Active Substance: CYCLOSPORINE
  6. MULTIVITAMIN [Concomitant]
     Active Substance: VITAMINS

REACTIONS (6)
  - Oral mucosal blistering [None]
  - Lip swelling [None]
  - Oropharyngeal pain [None]
  - Swollen tongue [None]
  - Pyrexia [None]
  - Influenza [None]

NARRATIVE: CASE EVENT DATE: 20131210
